FAERS Safety Report 24566852 (Version 1)
Quarter: 2024Q4

REPORT INFORMATION
  Report Type: Spontaneous
  Country: US (occurrence: None)
  Receive Date: 20241030
  Receipt Date: 20241030
  Transmission Date: 20250114
  Serious: Yes (Other)
  Sender: Public
  Company Number: None

PATIENT
  Age: 71 Year
  Sex: Female
  Weight: 71.2 kg

DRUGS (1)
  1. REGADENOSON [Suspect]
     Active Substance: REGADENOSON
     Indication: Scan myocardial perfusion
     Dosage: OTHER FREQUENCY : ONE TIME;?
     Route: 042
     Dates: start: 20241028, end: 20241028

REACTIONS (8)
  - Blood pressure systolic increased [None]
  - Immediate post-injection reaction [None]
  - Dyspnoea [None]
  - Nausea [None]
  - Hyperhidrosis [None]
  - Heart rate decreased [None]
  - Blood pressure diastolic decreased [None]
  - Blood pressure diastolic increased [None]

NARRATIVE: CASE EVENT DATE: 20241029
